FAERS Safety Report 6193184-9 (Version None)
Quarter: 2009Q2

REPORT INFORMATION
  Report Type: 
  Country: None (occurrence: None)
  Receive Date: 20090518
  Receipt Date: 20090508
  Transmission Date: 20091009
  Serious: Yes (Hospitalization)
  Sender: FDA-Public Use
  Company Number: A0751898A

PATIENT
  Age: 56 Year
  Sex: Female
  Weight: 78.6 kg

DRUGS (6)
  1. AVANDIA [Suspect]
     Route: 048
     Dates: end: 20061201
  2. GLUCOPHAGE [Concomitant]
  3. LEVAQUIN [Concomitant]
  4. DARVOCET [Concomitant]
  5. AMBIEN [Concomitant]
  6. INSULIN [Concomitant]

REACTIONS (3)
  - CARDIAC FAILURE CONGESTIVE [None]
  - HEART INJURY [None]
  - MYOCARDIAL INFARCTION [None]
